FAERS Safety Report 12380499 (Version 2)
Quarter: 2016Q3

REPORT INFORMATION
  Report Type: Spontaneous
  Country: US (occurrence: US)
  Receive Date: 20160518
  Receipt Date: 20160725
  Transmission Date: 20161109
  Serious: No
  Sender: FDA-Public Use
  Company Number: US-PFIZER INC-2016260708

PATIENT

DRUGS (2)
  1. ADVIL [Suspect]
     Active Substance: IBUPROFEN
     Indication: PAIN
     Dosage: UNK
  2. ADVIL [Suspect]
     Active Substance: IBUPROFEN
     Indication: HEADACHE

REACTIONS (3)
  - Therapeutic response unexpected [Unknown]
  - Pre-existing condition improved [Unknown]
  - Energy increased [Unknown]
